FAERS Safety Report 14298420 (Version 1)
Quarter: 2017Q4

REPORT INFORMATION
  Report Type: Spontaneous
  Country: US (occurrence: US)
  Receive Date: 20171215
  Receipt Date: 20171215
  Transmission Date: 20180321
  Serious: Yes (Life-Threatening)
  Sender: FDA-Public Use
  Company Number: None

PATIENT
  Sex: Female
  Weight: 67.5 kg

DRUGS (10)
  1. EMBEDA [Concomitant]
     Active Substance: MORPHINE SULFATE\NALTREXONE HYDROCHLORIDE
  2. TOPAMAX [Concomitant]
     Active Substance: TOPIRAMATE
  3. NARCAN [Suspect]
     Active Substance: NALOXONE HYDROCHLORIDE
     Indication: OVERDOSE
     Dosage: ?          QUANTITY:1 SPRAY(S);OTHER ROUTE:NASAL?
     Route: 045
     Dates: start: 20171213, end: 20171213
  4. SEROQUEL [Concomitant]
     Active Substance: QUETIAPINE FUMARATE
  5. PROZAC [Concomitant]
     Active Substance: FLUOXETINE HYDROCHLORIDE
  6. MVI [Concomitant]
     Active Substance: VITAMINS
  7. KEPPRA [Concomitant]
     Active Substance: LEVETIRACETAM
  8. HYDROCODONE [Concomitant]
     Active Substance: HYDROCODONE
  9. FE [Concomitant]
     Active Substance: IRON
  10. ESTRADIOL. [Concomitant]
     Active Substance: ESTRADIOL

REACTIONS (4)
  - Condition aggravated [None]
  - Product use complaint [None]
  - Euphoric mood [None]
  - Extra dose administered [None]

NARRATIVE: CASE EVENT DATE: 20171213
